FAERS Safety Report 7032566-X (Version None)
Quarter: 2010Q4

REPORT INFORMATION
  Report Type: 
  Country: None (occurrence: None)
  Receive Date: 20101007
  Receipt Date: 20100927
  Transmission Date: 20110411
  Serious: Yes (Hospitalization, Other)
  Sender: FDA-Public Use
  Company Number: US-ROCHE-706920

PATIENT
  Sex: Female
  Weight: 50.8 kg

DRUGS (1)
  1. ACCUTANE [Suspect]
     Indication: ACNE
     Route: 065
     Dates: start: 19950101

REACTIONS (6)
  - ANAL STENOSIS [None]
  - CROHN'S DISEASE [None]
  - ENTEROCUTANEOUS FISTULA [None]
  - INFLAMMATORY BOWEL DISEASE [None]
  - INTESTINAL OBSTRUCTION [None]
  - PELVIC ABSCESS [None]
